FAERS Safety Report 5771332-X (Version None)
Quarter: 2008Q2

REPORT INFORMATION
  Report Type: 
  Country: None (occurrence: None)
  Receive Date: 20080613
  Receipt Date: 20080609
  Transmission Date: 20081010
  Serious: Yes (Other)
  Sender: FDA-Public Use
  Company Number: CA-WYE-H04423308

PATIENT

DRUGS (1)
  1. CHILDREN'S ADVIL COLD [Suspect]
     Indication: PYREXIA
     Dosage: UNKNOWN
     Route: 048

REACTIONS (3)
  - DRUG ADMINISTRATION ERROR [None]
  - DRUG INEFFECTIVE [None]
  - FEBRILE CONVULSION [None]
